FAERS Safety Report 9816209 (Version 3)
Quarter: 2014Q1

REPORT INFORMATION
  Report Type: Report from Study
  Country: US (occurrence: US)
  Receive Date: 20140114
  Receipt Date: 20140127
  Transmission Date: 20141002
  Serious: Yes (Death, Other)
  Sender: FDA-Public Use
  Company Number: US-ACTELION-A-US2013-89342

PATIENT
  Age: 57 Year
  Sex: Male

DRUGS (3)
  1. TRACLEER [Suspect]
     Indication: PULMONARY ARTERIAL HYPERTENSION
     Dosage: UNK
     Route: 048
     Dates: end: 20131230
  2. TYVASO [Concomitant]
  3. SILDENAFIL [Concomitant]

REACTIONS (3)
  - Lung neoplasm malignant [Fatal]
  - Biopsy lung [Not Recovered/Not Resolved]
  - Dyspnoea [Unknown]
